FAERS Safety Report 23611318 (Version 2)
Quarter: 2024Q1

REPORT INFORMATION
  Report Type: Spontaneous
  Country: US (occurrence: US)
  Receive Date: 20240308
  Receipt Date: 20240318
  Transmission Date: 20240410
  Serious: Yes (Life-Threatening, Hospitalization)
  Sender: FDA-Public Use
  Company Number: US-JNJFOC-20240300834

PATIENT
  Age: 26 Year
  Sex: Male
  Weight: 189.32 kg

DRUGS (6)
  1. SPRAVATO [Suspect]
     Active Substance: ESKETAMINE
     Indication: Depression
     Dosage: 56 MG, 1 TOTAL DOSES
     Dates: start: 20231031, end: 20231031
  2. SPRAVATO [Suspect]
     Active Substance: ESKETAMINE
     Dosage: 84 MG, 13 TOTAL DOSES
     Dates: start: 20231103, end: 20240222
  3. MYDAYIS [Concomitant]
     Active Substance: AMPHETAMINE ASPARTATE\AMPHETAMINE SULFATE\DEXTROAMPHETAMINE SACCHARATE\DEXTROAMPHETAMINE SULFATE
     Indication: Attention deficit hyperactivity disorder
     Route: 065
  4. XYWAV [Concomitant]
     Active Substance: CALCIUM OXYBATE\MAGNESIUM OXYBATE\POTASSIUM OXYBATE\SODIUM OXYBATE
     Indication: Product used for unknown indication
     Route: 065
  5. ADDERALL [Concomitant]
     Active Substance: AMPHETAMINE ASPARTATE\AMPHETAMINE SULFATE\DEXTROAMPHETAMINE SACCHARATE\DEXTROAMPHETAMINE SULFATE
     Indication: Attention deficit hyperactivity disorder
     Route: 048
  6. DESVENLAFAXINE [Concomitant]
     Active Substance: DESVENLAFAXINE
     Indication: Generalised anxiety disorder
     Route: 048

REACTIONS (1)
  - Acute myocardial infarction [Unknown]

NARRATIVE: CASE EVENT DATE: 20240226
